FAERS Safety Report 8233861-9 (Version None)
Quarter: 2012Q1

REPORT INFORMATION
  Report Type: 
  Country: None (occurrence: None)
  Receive Date: 20120326
  Receipt Date: 20120314
  Transmission Date: 20120608
  Serious: Yes (Hospitalization)
  Sender: FDA-Public Use
  Company Number: CO-ELI_LILLY_AND_COMPANY-CO201203005211

PATIENT
  Age: 78 Year
  Sex: Female

DRUGS (10)
  1. ASPIRIN [Concomitant]
  2. MIACALCIN [Concomitant]
     Indication: SUPPLEMENTATION THERAPY
     Route: 045
  3. CALCITRIOL [Concomitant]
     Indication: SUPPLEMENTATION THERAPY
  4. LOVASTATIN [Concomitant]
  5. TRAZODONE HCL [Concomitant]
  6. FORTEO [Suspect]
     Indication: OSTEOPOROSIS
     Dosage: 20 UG, QD
     Route: 058
     Dates: start: 20110701
  7. ENALAPRIL MALEATE [Concomitant]
  8. MIRTAZAPINE [Concomitant]
  9. METFORMIN HCL [Concomitant]
  10. ACETAMINOPHEN [Concomitant]

REACTIONS (2)
  - DIZZINESS [None]
  - FALL [None]
